FAERS Safety Report 10244531 (Version 5)
Quarter: 2014Q3

REPORT INFORMATION
  Report Type: Spontaneous
  Country: US (occurrence: None)
  Receive Date: 20140617
  Receipt Date: 20140723
  Transmission Date: 20150326
  Serious: Yes (Hospitalization)
  Sender: FDA-Public Use
  Company Number: 2014CT000036

PATIENT
  Age: 52 Year
  Sex: Female
  Weight: 92.08 kg

DRUGS (17)
  1. KORLYM [Suspect]
     Active Substance: MIFEPRISTONE
     Indication: ADRENAL GLAND CANCER
     Route: 048
     Dates: start: 20140307
  2. MITOTANE [Suspect]
     Active Substance: MITOTANE
  3. SPIRONOLACTONE. [Concomitant]
     Active Substance: SPIRONOLACTONE
  4. DOXYCYCLINE. [Concomitant]
     Active Substance: DOXYCYCLINE
  5. TRAMADOL [Concomitant]
     Active Substance: TRAMADOL
  6. MECLIZINE [Concomitant]
     Active Substance: MECLIZINE\MECLIZINE HYDROCHLORIDE
  7. ADCIRCA [Concomitant]
     Active Substance: TADALAFIL
  8. LANTUS [Concomitant]
     Active Substance: INSULIN GLARGINE
  9. FUROSEMIDE. [Concomitant]
     Active Substance: FUROSEMIDE
  10. MAGNESIUM OXIDE. [Concomitant]
     Active Substance: MAGNESIUM OXIDE
  11. ACETAMINOPHEN W/ OXYCODONE [Concomitant]
     Active Substance: ACETAMINOPHEN\OXYCODONE HYDROCHLORIDE
  12. MUCINEX [Concomitant]
     Active Substance: GUAIFENESIN
  13. POTASSIUM [Concomitant]
     Active Substance: POTASSIUM
  14. HUMALOG [Concomitant]
     Active Substance: INSULIN LISPRO
  15. BYSTOLIC [Concomitant]
     Active Substance: NEBIVOLOL HYDROCHLORIDE
  16. MINOXIDIL. [Concomitant]
     Active Substance: MINOXIDIL
  17. METOLAZONE. [Concomitant]
     Active Substance: METOLAZONE

REACTIONS (13)
  - Lymphoedema [None]
  - Atrial fibrillation [None]
  - Hypokalaemia [None]
  - Oedema peripheral [None]
  - Hypotension [None]
  - Vomiting [None]
  - Hypoxia [None]
  - Dyspnoea [None]
  - Confusional state [None]
  - Post procedural complication [None]
  - Nausea [None]
  - Fall [None]
  - Right ventricular failure [None]

NARRATIVE: CASE EVENT DATE: 201403
